FAERS Safety Report 7600495-6 (Version None)
Quarter: 2011Q3

REPORT INFORMATION
  Report Type: 
  Country: None (occurrence: None)
  Receive Date: 20110708
  Receipt Date: 20110708
  Transmission Date: 20111222
  Serious: Yes (Hospitalization)
  Sender: FDA-Public Use
  Company Number: None

PATIENT
  Age: 58 Year
  Sex: Female
  Weight: 69.8539 kg

DRUGS (4)
  1. ALPRAZOLAM [Concomitant]
  2. LEXAPRO [Concomitant]
  3. BUPROPION HCL [Suspect]
     Indication: DEPRESSION
     Dosage: 150MG SR OCCASIONALLY ACTAVISSOU
     Dates: start: 20110124
  4. BUPROPION HCL [Suspect]
     Indication: DEPRESSION
     Dosage: 150MG SR OCCASIONALLY ACTAVISSOU
     Dates: start: 20110310

REACTIONS (3)
  - CONVULSION [None]
  - INSOMNIA [None]
  - ROAD TRAFFIC ACCIDENT [None]
